FAERS Safety Report 6880861-7 (Version None)
Quarter: 2010Q3

REPORT INFORMATION
  Report Type: 
  Country: None (occurrence: None)
  Receive Date: 20100728
  Receipt Date: 20100722
  Transmission Date: 20110219
  Serious: Yes (Disabling)
  Sender: FDA-Public Use
  Company Number: FR-BRISTOL-MYERS SQUIBB COMPANY-15205172

PATIENT
  Age: 61 Year
  Sex: Male

DRUGS (3)
  1. ERBITUX [Suspect]
     Indication: EPIGLOTTIC CARCINOMA
     Dosage: 400MG: 04JAN2010 AT DAY 1
     Route: 042
     Dates: start: 20091027
  2. CISPLATIN [Suspect]
     Indication: EPIGLOTTIC CARCINOMA
     Route: 042
  3. FLUOROURACIL [Suspect]
     Indication: EPIGLOTTIC CARCINOMA
     Dosage: 1800MG AT DAY 1 ON 14JAN10
     Route: 042

REACTIONS (1)
  - TENDON RUPTURE [None]
